FAERS Safety Report 18833242 (Version 1)
Quarter: 2021Q1

REPORT INFORMATION
  Report Type: Spontaneous
  Country: US (occurrence: US)
  Receive Date: 20210203
  Receipt Date: 20210203
  Transmission Date: 20210419
  Serious: No
  Sender: FDA-Public Use
  Company Number: US-ALLERGAN-2001873US

PATIENT
  Sex: Female

DRUGS (2)
  1. BOTOX [Suspect]
     Active Substance: ONABOTULINUMTOXINA
     Indication: PRODUCT USED FOR UNKNOWN INDICATION
     Dosage: 36 UNITS, SINGLE
     Route: 065
     Dates: start: 20191218, end: 20191218
  2. BOTOX [Suspect]
     Active Substance: ONABOTULINUMTOXINA
     Dosage: 12 UNITS, SINGLE
     Route: 065
     Dates: start: 20191218, end: 20191218

REACTIONS (13)
  - Weight decreased [Recovering/Resolving]
  - Pruritus [Recovering/Resolving]
  - Dyspnoea [Recovering/Resolving]
  - Nausea [Recovering/Resolving]
  - Off label use [Unknown]
  - Dry mouth [Recovering/Resolving]
  - Flushing [Recovering/Resolving]
  - Chest discomfort [Recovering/Resolving]
  - Pharyngeal hypoaesthesia [Recovering/Resolving]
  - Hypersensitivity [Recovering/Resolving]
  - Rash [Recovering/Resolving]
  - Asthenia [Not Recovered/Not Resolved]
  - Vision blurred [Recovering/Resolving]
